FAERS Safety Report 14687546 (Version 1)
Quarter: 2018Q1

REPORT INFORMATION
  Report Type: Spontaneous
  Country: US (occurrence: US)
  Receive Date: 20180328
  Receipt Date: 20180328
  Transmission Date: 20180509
  Serious: Yes (Other)
  Sender: FDA-Public Use
  Company Number: US-009507513-1803USA009928

PATIENT
  Age: 14 Year
  Sex: Male

DRUGS (1)
  1. KEYTRUDA [Suspect]
     Active Substance: PEMBROLIZUMAB
     Indication: ALVEOLAR SOFT PART SARCOMA
     Dosage: 2 MG/KG (125 MG) OVER 30 MINUTES EVERY 3 WEEKS
     Route: 042

REACTIONS (3)
  - Product use issue [Unknown]
  - Hyperbilirubinaemia [Recovered/Resolved]
  - Off label use [Unknown]
